FAERS Safety Report 16891658 (Version 4)
Quarter: 2020Q3

REPORT INFORMATION
  Report Type: Report from Study
  Country: US (occurrence: US)
  Receive Date: 20191007
  Receipt Date: 20200803
  Transmission Date: 20201102
  Serious: Yes (Death, Hospitalization)
  Sender: FDA-Public Use
  Company Number: US-BAUSCH-BL-2019-056902

PATIENT
  Age: 69 Year
  Sex: Male
  Weight: 84.44 kg

DRUGS (4)
  1. XIFAXAN [Suspect]
     Active Substance: RIFAXIMIN
     Dosage: HALF DOSE
     Route: 048
     Dates: start: 20190929, end: 20190930
  2. XIFAXAN [Suspect]
     Active Substance: RIFAXIMIN
     Indication: HEPATIC CIRRHOSIS
     Route: 048
     Dates: start: 201908, end: 20190928
  3. XIFAXAN [Suspect]
     Active Substance: RIFAXIMIN
     Route: 048
     Dates: start: 2019
  4. XIFAXAN [Suspect]
     Active Substance: RIFAXIMIN
     Route: 048
     Dates: start: 20200406, end: 20200410

REACTIONS (11)
  - Intentional product use issue [Unknown]
  - Mitral valve incompetence [Recovering/Resolving]
  - Confusional state [Not Recovered/Not Resolved]
  - Death [Fatal]
  - Incorrect dose administered [Unknown]
  - Insurance issue [Unknown]
  - Tremor [Not Recovered/Not Resolved]
  - Product supply issue [Unknown]
  - Nausea [Not Recovered/Not Resolved]
  - Condition aggravated [Recovering/Resolving]
  - Therapy interrupted [Unknown]

NARRATIVE: CASE EVENT DATE: 2019
